FAERS Safety Report 7583979-9 (Version None)
Quarter: 2011Q2

REPORT INFORMATION
  Report Type: 
  Country: None (occurrence: None)
  Receive Date: 20110628
  Receipt Date: 20110628
  Transmission Date: 20111010
  Serious: Yes (Life-Threatening, Hospitalization, Disabling)
  Sender: FDA-Public Use
  Company Number: None

PATIENT
  Age: 50 Year
  Sex: Male
  Weight: 77.1115 kg

DRUGS (1)
  1. PHENYTOIN SODIUM [Suspect]
     Indication: HEADACHE
     Dosage: 100MG CAPS. EVERY OTHER DAY ORALLY
     Route: 048
     Dates: start: 19770101, end: 20080101

REACTIONS (4)
  - ANURIA [None]
  - BRAIN INJURY [None]
  - NEUROGENIC BLADDER [None]
  - TOXICITY TO VARIOUS AGENTS [None]
